FAERS Safety Report 8523228 (Version 5)
Quarter: 2013Q3

REPORT INFORMATION
  Report Type: Report from Study
  Country: CA (occurrence: CA)
  Receive Date: 20120420
  Receipt Date: 20130903
  Transmission Date: 20140515
  Serious: Yes (Hospitalization, Other)
  Sender: FDA-Public Use
  Company Number: PHHY2012CA032055

PATIENT
  Age: 55 Year
  Sex: Male

DRUGS (5)
  1. SANDOSTATIN LAR [Suspect]
     Indication: ACROMEGALY
     Dosage: UNK UKN, UNK
     Dates: start: 2010
  2. SANDOSTATIN LAR [Suspect]
     Dosage: 40 MG, EVERY 4 WEEKS
     Route: 030
     Dates: start: 20110708
  3. SANDOSTATIN LAR [Suspect]
     Dosage: 30 MG, EVERY 4 WEEKS
     Route: 030
     Dates: start: 201205
  4. SANDOSTATIN LAR [Suspect]
     Dosage: 40 MG, EVERY 4 WEEKS
     Route: 030
     Dates: start: 201207
  5. SANDOSTATIN LAR [Suspect]
     Dosage: 1 TABLET 2 TIMES/WEEK
     Dates: start: 201207

REACTIONS (5)
  - Acute coronary syndrome [Unknown]
  - Chest pain [Unknown]
  - Coronary artery occlusion [Unknown]
  - Blood growth hormone increased [Unknown]
  - Headache [Unknown]
